FAERS Safety Report 11180786 (Version 1)
Quarter: 2015Q2

REPORT INFORMATION
  Report Type: Spontaneous
  Country: US (occurrence: None)
  Receive Date: 20150610
  Receipt Date: 20150610
  Transmission Date: 20150821
  Serious: Yes (Life-Threatening, Hospitalization)
  Sender: FDA-Public Use
  Company Number: None

PATIENT
  Age: 79 Year
  Sex: Male
  Weight: 109.3 kg

DRUGS (1)
  1. INSULIN [Suspect]
     Active Substance: INSULIN NOS
     Indication: DIABETES MELLITUS
     Dosage: 39 UNITS, BID
     Route: 058
     Dates: start: 20111021, end: 20111219

REACTIONS (3)
  - Condition aggravated [None]
  - Hypoglycaemia [None]
  - Cardiac failure congestive [None]

NARRATIVE: CASE EVENT DATE: 20111219
